FAERS Safety Report 8260637-9 (Version None)
Quarter: 2012Q2

REPORT INFORMATION
  Report Type: 
  Country: None (occurrence: None)
  Receive Date: 20120405
  Receipt Date: 20120330
  Transmission Date: 20120825
  Serious: Yes (Hospitalization, Other)
  Sender: FDA-Public Use
  Company Number: FR-AMGEN-FRASP2011065048

PATIENT
  Age: 69 Year
  Sex: Female

DRUGS (7)
  1. NPLATE [Suspect]
     Indication: IDIOPATHIC THROMBOCYTOPENIC PURPURA
     Dosage: 540 MUG, QWK
     Route: 058
     Dates: start: 20100201, end: 20111117
  2. PROPYLTHIOURACIL [Suspect]
     Indication: TOXIC NODULAR GOITRE
     Dosage: 5 UNK, UNK
     Route: 048
     Dates: end: 20120123
  3. OMEPRAZOLE [Concomitant]
  4. ATARAX [Concomitant]
     Dosage: 25 MG, UNK
  5. VALSARTAN  AND HYDROCHLOROTHIAZIDE [Concomitant]
     Indication: HYPERTENSION
     Dosage: 160 UNK, UNK
  6. THYROID THERAPY [Concomitant]
     Indication: HYPERTHYROIDISM
  7. FLUTICASONE PROPIONATE/SALMETEROL [Concomitant]
     Dosage: 500 UNK, UNK

REACTIONS (11)
  - MYELOFIBROSIS [None]
  - RETICULIN INCREASED [None]
  - PETECHIAE [None]
  - PLATELET COUNT DECREASED [None]
  - APLASIA [None]
  - EAR HAEMORRHAGE [None]
  - BONE MARROW FAILURE [None]
  - PLATELET COUNT ABNORMAL [None]
  - THROMBOCYTOPENIA [None]
  - PANCYTOPENIA [None]
  - EPISTAXIS [None]
